FAERS Safety Report 5167686-8 (Version None)
Quarter: 2006Q4

REPORT INFORMATION
  Report Type: 
  Country: None (occurrence: None)
  Receive Date: 20061201
  Receipt Date: 20061201
  Transmission Date: 20070319
  Serious: Yes (Other)
  Sender: FDA-Public Use
  Company Number: None

PATIENT
  Sex: Male
  Weight: 59.3 kg

DRUGS (7)
  1. OXACILLIN [Suspect]
     Indication: POSTOPERATIVE INFECTION
     Dosage: 2GM EVERY 6 HOURS IV
     Route: 042
     Dates: start: 20061103, end: 20061129
  2. OXACILLIN [Suspect]
     Indication: POSTOPERATIVE INFECTION
     Dosage: 2GM EVERY  6 HOURS IV
     Route: 042
  3. COUMADIN [Concomitant]
  4. PAXIL [Concomitant]
  5. TOPROL-XL [Concomitant]
  6. DARVOCET-N 100 [Concomitant]
  7. TYLENOL [Concomitant]

REACTIONS (1)
  - WHITE BLOOD CELL COUNT DECREASED [None]
